FAERS Safety Report 8850665 (Version 5)
Quarter: 2017Q2

REPORT INFORMATION
  Report Type: Spontaneous
  Country: US (occurrence: US)
  Receive Date: 20121019
  Receipt Date: 20170426
  Transmission Date: 20170830
  Serious: Yes (Hospitalization, Other)
  Sender: FDA-Public Use
  Company Number: US-009507513-1210USA004530

PATIENT
  Sex: Female

DRUGS (4)
  1. FOSAMAX [Suspect]
     Active Substance: ALENDRONATE SODIUM
     Indication: OSTEOPOROSIS
     Dosage: 70 MG, QW
     Route: 048
     Dates: start: 20040212, end: 20050902
  2. FOSAMAX [Suspect]
     Active Substance: ALENDRONATE SODIUM
     Dosage: 70 MG, QW
     Route: 048
     Dates: start: 200304, end: 20050902
  3. BONIVA [Suspect]
     Active Substance: IBANDRONATE SODIUM
     Indication: OSTEOPOROSIS
     Dosage: 150 MG, QM
     Route: 048
     Dates: start: 20060125, end: 20110428
  4. NEXIUM [Concomitant]
     Active Substance: ESOMEPRAZOLE MAGNESIUM
     Indication: PRODUCT USED FOR UNKNOWN INDICATION
     Dosage: UNK, UNKNOWN
     Route: 065
     Dates: start: 20040318, end: 20110518

REACTIONS (19)
  - Gastritis [Unknown]
  - Constipation [Unknown]
  - Spinal meningeal cyst [Unknown]
  - Systemic lupus erythematosus [Unknown]
  - Femur fracture [Recovered/Resolved]
  - Musculoskeletal pain [Unknown]
  - Rotator cuff syndrome [Unknown]
  - Hypotension [Unknown]
  - Hypertension [Unknown]
  - Fibromyalgia [Unknown]
  - Fall [Unknown]
  - Spinal osteoarthritis [Unknown]
  - Secondary hypertension [Unknown]
  - Back pain [Unknown]
  - Hypokalaemia [Unknown]
  - Nephrolithiasis [Unknown]
  - Psoriasis [Unknown]
  - Arthropathy [Unknown]
  - Anaemia postoperative [Unknown]

NARRATIVE: CASE EVENT DATE: 200411
